FAERS Safety Report 13974713 (Version 1)
Quarter: 2017Q3

REPORT INFORMATION
  Report Type: Spontaneous
  Country: US (occurrence: US)
  Receive Date: 20170915
  Receipt Date: 20170915
  Transmission Date: 20171128
  Serious: Yes (Other)
  Sender: FDA-Public Use
  Company Number: US-JNJFOC-20170910673

PATIENT
  Sex: Female

DRUGS (5)
  1. IBUPROFEN. [Suspect]
     Active Substance: IBUPROFEN
     Route: 065
  2. IBUPROFEN. [Suspect]
     Active Substance: IBUPROFEN
     Indication: PRODUCT USED FOR UNKNOWN INDICATION
     Route: 065
     Dates: end: 2017
  3. DUROGESIC [Suspect]
     Active Substance: FENTANYL
     Indication: PAIN IN EXTREMITY
     Route: 062
     Dates: start: 2017
  4. DUROGESIC [Suspect]
     Active Substance: FENTANYL
     Indication: PAIN IN EXTREMITY
     Route: 062
     Dates: start: 201701, end: 2017
  5. TOPIRAMATE. [Concomitant]
     Active Substance: TOPIRAMATE
     Indication: BLOOD TRIGLYCERIDES ABNORMAL
     Route: 065

REACTIONS (6)
  - Product use complaint [Unknown]
  - Weight increased [Unknown]
  - Product size issue [Unknown]
  - Insomnia [Unknown]
  - Renal impairment [Unknown]
  - Amnesia [Unknown]

NARRATIVE: CASE EVENT DATE: 2017
